FAERS Safety Report 14950810 (Version 1)
Quarter: 2018Q2

REPORT INFORMATION
  Report Type: Spontaneous
  Country: PT (occurrence: PT)
  Receive Date: 20180530
  Receipt Date: 20180530
  Transmission Date: 20180711
  Serious: Yes (Other)
  Sender: FDA-Public Use
  Company Number: PHHY2018PT002855

PATIENT
  Age: 39 Year
  Sex: Female
  Weight: 84 kg

DRUGS (5)
  1. COSENTYX [Suspect]
     Active Substance: SECUKINUMAB
     Dosage: 7 TH INJECTION
     Route: 065
  2. LEVOCETIRIZINE [Concomitant]
     Active Substance: LEVOCETIRIZINE
     Indication: SINUSITIS
     Dosage: UNK UNK, PRN (SOS)
     Route: 065
  3. COSENTYX [Suspect]
     Active Substance: SECUKINUMAB
     Indication: PSORIASIS
     Dosage: UNK
     Route: 065
     Dates: start: 20171120
  4. COSENTYX [Suspect]
     Active Substance: SECUKINUMAB
     Dosage: 6 TH INJETION
     Route: 065
  5. COSENTYX [Suspect]
     Active Substance: SECUKINUMAB
     Dosage: 8 TH INJECTION
     Route: 065

REACTIONS (2)
  - Weight increased [Unknown]
  - Drug effect incomplete [Unknown]
